FAERS Safety Report 17230702 (Version 1)
Quarter: 2020Q1

REPORT INFORMATION
  Report Type: Spontaneous
  Country: TR (occurrence: TR)
  Receive Date: 20200103
  Receipt Date: 20200103
  Transmission Date: 20200409
  Serious: Yes (Life-Threatening, Hospitalization)
  Sender: FDA-Public Use
  Company Number: TR-JNJFOC-20200101550

PATIENT
  Age: 31 Year
  Sex: Female
  Weight: 76 kg

DRUGS (2)
  1. YASMIN [Suspect]
     Active Substance: DROSPIRENONE\ETHINYL ESTRADIOL
     Indication: CONTRACEPTION
     Route: 048
     Dates: start: 20190526, end: 20191102
  2. RIVAROXABAN [Suspect]
     Active Substance: RIVAROXABAN
     Indication: PULMONARY EMBOLISM
     Dosage: UNK UNK, BID
     Route: 048
     Dates: start: 20191204, end: 20191225

REACTIONS (6)
  - Nasopharyngitis [Unknown]
  - Drug ineffective [Unknown]
  - Pneumonia [Unknown]
  - Musculoskeletal stiffness [Unknown]
  - Lung disorder [Unknown]
  - Pulmonary embolism [Recovered/Resolved]

NARRATIVE: CASE EVENT DATE: 20191110
